FAERS Safety Report 10028948 (Version 2)
Quarter: 2014Q1

REPORT INFORMATION
  Report Type: Spontaneous
  Country: US (occurrence: US)
  Receive Date: 20140321
  Receipt Date: 20140321
  Transmission Date: 20141002
  Serious: Yes (Disabling)
  Sender: FDA-Public Use
  Company Number: US-GE HEALTHCARE MEDICAL DIAGNOSTICS-OSCN-PR-0901S-0020

PATIENT
  Sex: Male
  Weight: 152.73 kg

DRUGS (32)
  1. GADOLINIUM (UNSPECIFIED) [Suspect]
     Indication: PRODUCT USED FOR UNKNOWN INDICATION
     Dates: start: 20030401, end: 20030401
  2. GADOLINIUM (UNSPECIFIED) [Suspect]
     Dates: start: 20030403, end: 20030403
  3. GADOLINIUM (UNSPECIFIED) [Suspect]
     Dates: start: 20030813, end: 20030813
  4. GADOLINIUM (UNSPECIFIED) [Suspect]
     Dates: start: 20040304, end: 20040304
  5. GADOLINIUM (UNSPECIFIED) [Suspect]
     Dates: start: 2005, end: 2005
  6. GADOLINIUM (UNSPECIFIED) [Suspect]
     Dates: start: 2006, end: 2006
  7. MAGNEVIST [Suspect]
     Indication: PRODUCT USED FOR UNKNOWN INDICATION
     Dates: start: 20030903, end: 20030903
  8. ACETAMINOPHEN [Concomitant]
  9. ASPIRIN [Concomitant]
  10. FISH OIL [Concomitant]
  11. PHOSLO [Concomitant]
  12. PLAVIX [Concomitant]
  13. RENAGEL [Concomitant]
  14. SENSIPAR [Concomitant]
  15. TOPROL XL [Concomitant]
  16. VICODIN [Concomitant]
  17. ZOCOR [Concomitant]
  18. LANTUS [Concomitant]
  19. HUMULIN [Concomitant]
  20. HUMALOG [Concomitant]
  21. ALLOPURINOL [Concomitant]
  22. FUROSEMIDE [Concomitant]
  23. TRICOR [Concomitant]
  24. TERAZOSIN [Concomitant]
  25. LISINOPRIL [Concomitant]
  26. METOPROLOL [Concomitant]
  27. EPOGEN [Concomitant]
  28. ZEMPLAR [Concomitant]
  29. BENICAR [Concomitant]
  30. VERELAN [Concomitant]
  31. DIOVAN [Concomitant]
  32. VIAGRA [Concomitant]

REACTIONS (1)
  - Nephrogenic systemic fibrosis [Not Recovered/Not Resolved]
